FAERS Safety Report 8598217-8 (Version None)
Quarter: 2012Q3

REPORT INFORMATION
  Report Type: 
  Country: None (occurrence: None)
  Receive Date: 20120802
  Receipt Date: 20120725
  Transmission Date: 20120928
  Serious: Yes (Death, Hospitalization)
  Sender: FDA-Public Use
  Company Number: 2012MA009133

PATIENT
  Age: 63 Year
  Sex: Male

DRUGS (6)
  1. DIAZEPAM [Suspect]
     Indication: INTENTIONAL DRUG MISUSE
     Dosage: PO
     Route: 048
  2. DIAZEPAM [Suspect]
     Indication: COMPLETED SUICIDE
     Dosage: PO
     Route: 048
  3. KADIAN [Suspect]
     Indication: INTENTIONAL DRUG MISUSE
     Dosage: PO
     Route: 048
  4. KADIAN [Suspect]
     Indication: COMPLETED SUICIDE
     Dosage: PO
     Route: 048
  5. ACETAMINOPHEN AND HYDROCODONE BITARTRATE [Suspect]
     Indication: INTENTIONAL DRUG MISUSE
     Dosage: PO
     Route: 048
  6. ACETAMINOPHEN AND HYDROCODONE BITARTRATE [Suspect]
     Indication: COMPLETED SUICIDE
     Dosage: PO
     Route: 048

REACTIONS (7)
  - BLOOD CREATINE PHOSPHOKINASE INCREASED [None]
  - TOXICITY TO VARIOUS AGENTS [None]
  - INTENTIONAL DRUG MISUSE [None]
  - ASPARTATE AMINOTRANSFERASE INCREASED [None]
  - UNRESPONSIVE TO STIMULI [None]
  - INTERNATIONAL NORMALISED RATIO DECREASED [None]
  - ALANINE AMINOTRANSFERASE INCREASED [None]
